FAERS Safety Report 8429120-1 (Version None)
Quarter: 2012Q2

REPORT INFORMATION
  Report Type: 
  Country: None (occurrence: None)
  Receive Date: 20120612
  Receipt Date: 20120601
  Transmission Date: 20120825
  Serious: Yes (Life-Threatening, Hospitalization)
  Sender: FDA-Public Use
  Company Number: ES-SANOFI-AVENTIS-2012SA025043

PATIENT
  Age: 63 Year
  Sex: Female

DRUGS (10)
  1. NOVORAPID [Interacting]
     Indication: SUICIDE ATTEMPT
     Dosage: FREQUENCY: TOTAL
     Route: 058
     Dates: start: 20111216, end: 20111216
  2. NOVORAPID [Interacting]
     Route: 058
     Dates: start: 20060101
  3. NOVORAPID [Interacting]
     Indication: INTENTIONAL OVERDOSE
     Dosage: FREQUENCY: TOTAL
     Route: 058
     Dates: start: 20111216, end: 20111216
  4. NOVORAPID [Interacting]
     Indication: DIABETES MELLITUS
     Dosage: FREQUENCY: TOTAL
     Route: 058
     Dates: start: 20111216, end: 20111216
  5. SINEMET [Concomitant]
     Indication: PARKINSON'S DISEASE
     Dosage: 25/100 MG
     Route: 048
     Dates: start: 20110727
  6. NOVORAPID [Interacting]
     Route: 058
     Dates: start: 20060101
  7. HYDROCHLOROTHIAZIDE [Concomitant]
     Indication: HYPERTENSION
     Route: 048
  8. VALIUM [Concomitant]
     Indication: ANXIETY
     Route: 048
     Dates: start: 20060101, end: 20111216
  9. LANTUS [Suspect]
     Indication: DIABETES MELLITUS
     Route: 058
     Dates: start: 20060101, end: 20111216
  10. NOVORAPID [Interacting]
     Route: 058
     Dates: start: 20060101

REACTIONS (5)
  - INTENTIONAL OVERDOSE [None]
  - HYPOGLYCAEMIA [None]
  - DRUG INTERACTION [None]
  - DEPRESSED LEVEL OF CONSCIOUSNESS [None]
  - SUICIDE ATTEMPT [None]
